FAERS Safety Report 4905945-1 (Version None)
Quarter: 2006Q1

REPORT INFORMATION
  Report Type: 
  Country: None (occurrence: None)
  Receive Date: 20060206
  Receipt Date: 20060127
  Transmission Date: 20060701
  Serious: Yes (Other)
  Sender: FDA-Public Use
  Company Number: 2006013952

PATIENT
  Age: 55 Year
  Sex: Female

DRUGS (1)
  1. NATURAL CITRUS LISTERINE (MENTHOL, METHYL SALICYLATE, EUCALYPTOL, THYM [Suspect]
     Dosage: ORAL
     Route: 048

REACTIONS (4)
  - ALCOHOL POISONING [None]
  - FAECES DISCOLOURED [None]
  - HAEMATOCHEZIA [None]
  - INTENTIONAL DRUG MISUSE [None]
